FAERS Safety Report 6038785-3 (Version None)
Quarter: 2009Q1

REPORT INFORMATION
  Report Type: 
  Country: None (occurrence: None)
  Receive Date: 20090115
  Receipt Date: 20080422
  Transmission Date: 20090719
  Serious: No
  Sender: FDA-Public Use
  Company Number: US-ABBOTT-08P-163-0448488-00

PATIENT
  Sex: Male

DRUGS (1)
  1. ADVICOR [Suspect]
     Indication: LIPIDS INCREASED
     Route: 065

REACTIONS (2)
  - FLUSHING [None]
  - ULCER [None]
